FAERS Safety Report 25676481 (Version 1)
Quarter: 2025Q3

REPORT INFORMATION
  Report Type: Spontaneous
  Country: US (occurrence: None)
  Receive Date: 20250812
  Receipt Date: 20250812
  Transmission Date: 20251021
  Serious: Yes (Other)
  Sender: FDA-CTU
  Company Number: None

PATIENT
  Age: 60 Year
  Sex: Male
  Weight: 81.2 kg

DRUGS (2)
  1. TENECTEPLASE [Suspect]
     Active Substance: TENECTEPLASE
     Indication: Cerebrovascular accident
     Dates: start: 20250516, end: 20250516
  2. TENECTEPLASE [Concomitant]
     Active Substance: TENECTEPLASE
     Dates: start: 20250516, end: 20250516

REACTIONS (4)
  - Thalamus haemorrhage [None]
  - Cerebral ischaemia [None]
  - Lacunar infarction [None]
  - Basal ganglia infarction [None]

NARRATIVE: CASE EVENT DATE: 20250517
